FAERS Safety Report 12969608 (Version 6)
Quarter: 2016Q4

REPORT INFORMATION
  Report Type: Report from Study
  Country: None (occurrence: NL)
  Receive Date: 20161123
  Receipt Date: 20161227
  Transmission Date: 20170207
  Serious: Yes (Hospitalization)
  Sender: FDA-Public Use
  Company Number: NL-ABBVIE-16P-114-1774983-00

PATIENT
  Age: 66 Year
  Sex: Female

DRUGS (7)
  1. DUODOPA [Suspect]
     Active Substance: CARBIDOPA\LEVODOPA
     Dosage: MD: 11.5, CD: 4.7, ED: 5, CND: 3.5, END: 3
     Route: 050
     Dates: start: 20161031, end: 20161101
  2. DUODOPA [Suspect]
     Active Substance: CARBIDOPA\LEVODOPA
     Dosage: CD 5.6ML
     Route: 050
     Dates: start: 20161206
  3. DUODOPA [Suspect]
     Active Substance: CARBIDOPA\LEVODOPA
     Indication: PARKINSON^S DISEASE
     Route: 050
     Dates: start: 20161024
  4. DUODOPA [Suspect]
     Active Substance: CARBIDOPA\LEVODOPA
     Dosage: MD 12.5, CD INCREASED WITH 0.3ML, ED INCREASED WITH 0.5 ML
     Route: 050
     Dates: start: 20161103, end: 20161103
  5. DUODOPA [Suspect]
     Active Substance: CARBIDOPA\LEVODOPA
     Dosage: CD DAY 5.0ML; ED 5.5 ML; CD NIGHT 3.7ML; ED NIGHT 3.0ML
     Route: 050
     Dates: start: 20161101, end: 20161103
  6. DUODOPA [Suspect]
     Active Substance: CARBIDOPA\LEVODOPA
     Dosage: MD 11.5ML, CD 5.3, ED 6.0, NIGHT DOSE UNCHANGED
     Route: 050
     Dates: start: 20161103
  7. SIFROL [Concomitant]
     Active Substance: PRAMIPEXOLE
     Indication: PRODUCT USED FOR UNKNOWN INDICATION

REACTIONS (38)
  - Limb discomfort [Not Recovered/Not Resolved]
  - Hyperkinesia [Recovering/Resolving]
  - Hyperhidrosis [Not Recovered/Not Resolved]
  - Drug effect variable [Not Recovered/Not Resolved]
  - Skin odour abnormal [Not Recovered/Not Resolved]
  - Nausea [Recovered/Resolved]
  - Musculoskeletal stiffness [Not Recovered/Not Resolved]
  - Dyspnoea [Unknown]
  - Hypophagia [Recovering/Resolving]
  - Bedridden [Recovering/Resolving]
  - Constipation [Recovered/Resolved]
  - Depressed mood [Recovering/Resolving]
  - On and off phenomenon [Not Recovered/Not Resolved]
  - Drug ineffective [Recovering/Resolving]
  - Hallucination [Recovered/Resolved]
  - Dyskinesia [Not Recovered/Not Resolved]
  - Dry mouth [Not Recovered/Not Resolved]
  - Fibroma [Not Recovered/Not Resolved]
  - Vomiting [Recovered/Resolved]
  - Mobility decreased [Unknown]
  - Hallucination [Not Recovered/Not Resolved]
  - Limb discomfort [Not Recovered/Not Resolved]
  - On and off phenomenon [Not Recovered/Not Resolved]
  - Respiratory rate increased [Not Recovered/Not Resolved]
  - Stoma site discharge [Not Recovered/Not Resolved]
  - Restlessness [Unknown]
  - Faeces hard [Unknown]
  - Gait disturbance [Not Recovered/Not Resolved]
  - Constipation [Unknown]
  - Skin lesion [Not Recovered/Not Resolved]
  - Device issue [Not Recovered/Not Resolved]
  - Fluid intake reduced [Recovered/Resolved]
  - Dysphagia [Not Recovered/Not Resolved]
  - Nausea [Recovered/Resolved]
  - Underdose [Unknown]
  - Decreased appetite [Recovering/Resolving]
  - Incorrect dose administered [Recovered/Resolved]
  - Nausea [Recovered/Resolved]

NARRATIVE: CASE EVENT DATE: 2016
